FAERS Safety Report 23323243 (Version 1)
Quarter: 2023Q4

REPORT INFORMATION
  Report Type: Other
  Country: US (occurrence: None)
  Receive Date: 20231220
  Receipt Date: 20231220
  Transmission Date: 20240109
  Serious: No
  Sender: FDA-Public Use
  Company Number: US-ROCHE-3354632

PATIENT
  Age: 66 Year
  Sex: Male

DRUGS (9)
  1. RITUXIMAB [Suspect]
     Active Substance: RITUXIMAB
     Indication: COVID-19
     Route: 065
  2. RITUXIMAB [Suspect]
     Active Substance: RITUXIMAB
     Indication: Encephalitis
  3. TOCILIZUMAB [Suspect]
     Active Substance: TOCILIZUMAB
     Indication: COVID-19
     Dosage: 2 DOSES
     Route: 065
  4. TOCILIZUMAB [Suspect]
     Active Substance: TOCILIZUMAB
     Indication: Encephalitis
  5. VANCOMYCIN [Concomitant]
     Active Substance: VANCOMYCIN
     Indication: Meningitis
  6. ACYCLOVIR [Concomitant]
     Active Substance: ACYCLOVIR
     Indication: Meningitis
  7. AMPICILLIN [Concomitant]
     Active Substance: AMPICILLIN
     Indication: Meningitis
  8. CEFTRIAXONE [Concomitant]
     Active Substance: CEFTRIAXONE\CEFTRIAXONE SODIUM
     Indication: Meningitis
  9. PHENYTOIN [Concomitant]
     Active Substance: PHENYTOIN
     Indication: Seizure prophylaxis

REACTIONS (2)
  - Off label use [Unknown]
  - No adverse event [Unknown]
